FAERS Safety Report 11184788 (Version 1)
Quarter: 2015Q2

REPORT INFORMATION
  Report Type: Spontaneous
  Country: BR (occurrence: BR)
  Receive Date: 20150612
  Receipt Date: 20150612
  Transmission Date: 20150821
  Serious: Yes (Other)
  Sender: FDA-Public Use
  Company Number: BR-PFIZER INC-2015193416

PATIENT
  Age: 75 Year
  Sex: Male
  Weight: 86 kg

DRUGS (4)
  1. ASPIRINA [Concomitant]
     Active Substance: ASPIRIN
     Indication: BLOOD DISORDER
     Dosage: 1 TABLET (300 MG), 1X/DAY
     Dates: start: 20130605
  2. CONCORDE [Concomitant]
     Indication: BLOOD PRESSURE
     Dosage: HALF TABLET OF 2.5 MG, 1X/DAY
     Dates: start: 20130605
  3. LIPITOR [Suspect]
     Active Substance: ATORVASTATIN CALCIUM
     Indication: BLOOD CHOLESTEROL
     Dosage: 1 TABLET (20 MG), 1X/DAY
     Route: 048
     Dates: start: 20120605
  4. ALDACTONE [Concomitant]
     Active Substance: SPIRONOLACTONE
     Indication: DIURETIC THERAPY
     Dosage: HALF TABLET OF 25, 1X/DAY
     Dates: start: 20130605

REACTIONS (2)
  - Cardiac valve disease [Recovered/Resolved]
  - Arrhythmia [Recovered/Resolved]

NARRATIVE: CASE EVENT DATE: 201409
